FAERS Safety Report 7347157-0 (Version None)
Quarter: 2011Q1

REPORT INFORMATION
  Report Type: 
  Country: None (occurrence: None)
  Receive Date: 20110303
  Receipt Date: 20110217
  Transmission Date: 20110831
  Serious: Yes (Hospitalization)
  Sender: FDA-Public Use
  Company Number: UTC-005290

PATIENT
  Age: 64 Year
  Sex: Male

DRUGS (4)
  1. ADCIRCA [Concomitant]
  2. DIURETICS (DIURETICS) [Concomitant]
  3. COUMADIN [Concomitant]
  4. REMODULIN [Suspect]
     Indication: PULMONARY ARTERIAL HYPERTENSION
     Dosage: INTRAVENOUS
     Route: 042
     Dates: start: 20080808

REACTIONS (2)
  - OEDEMA [None]
  - LEUKOPENIA [None]
